FAERS Safety Report 7276262-2 (Version None)
Quarter: 2011Q1

REPORT INFORMATION
  Report Type: 
  Country: None (occurrence: None)
  Receive Date: 20110204
  Receipt Date: 20110201
  Transmission Date: 20110831
  Serious: Yes (Hospitalization, Other)
  Sender: FDA-Public Use
  Company Number: DE-MEDIMMUNE-MEDI-0012014

PATIENT
  Sex: Male
  Weight: 5.75 kg

DRUGS (4)
  1. INHALATION [Suspect]
  2. SYNAGIS [Suspect]
     Indication: BRONCHOPULMONARY DYSPLASIA
     Dates: start: 20100101, end: 20101009
  3. SYNAGIS [Suspect]
     Dates: start: 20101105, end: 20101203
  4. CORTISONE ACETATE [Concomitant]

REACTIONS (4)
  - RESPIRATORY SYNCYTIAL VIRUS INFECTION [None]
  - PYREXIA [None]
  - COUGH [None]
  - BRONCHITIS [None]
